FAERS Safety Report 12554010 (Version 2)
Quarter: 2016Q3

REPORT INFORMATION
  Report Type: Spontaneous
  Country: IT (occurrence: IT)
  Receive Date: 20160713
  Receipt Date: 20160804
  Transmission Date: 20161109
  Serious: Yes (Other)
  Sender: FDA-Public Use
  Company Number: IT-TEVA-674384ACC

PATIENT
  Age: 52 Year
  Sex: Female
  Weight: 58 kg

DRUGS (2)
  1. CARBOPLATINO TEVA - 600 MG/60 ML - TEVA PHARMA B.V. [Suspect]
     Active Substance: CARBOPLATIN
     Indication: OVARIAN CANCER
     Dosage: 447 MG CYCLICAL
     Route: 042
     Dates: start: 20160504, end: 20160629
  2. CAELYX - 2 MG/ML CONCENTRATO PER SOLUZIONE PER INFUSIONE [Concomitant]
     Indication: OVARIAN CANCER
     Dosage: 36 MG
     Route: 042
     Dates: start: 20160504, end: 20160629

REACTIONS (2)
  - Erythema [Recovered/Resolved]
  - Band sensation [Recovered/Resolved]

NARRATIVE: CASE EVENT DATE: 20160629
